FAERS Safety Report 5257877-X (Version None)
Quarter: 2007Q1

REPORT INFORMATION
  Report Type: 
  Country: None (occurrence: None)
  Receive Date: 20061220
  Receipt Date: 20060828
  Transmission Date: 20070707
  Serious: No
  Sender: FDA-Public Use
  Company Number: 2006RL000341

PATIENT
  Age: 62 Year
  Sex: Female

DRUGS (2)
  1. OMACOR [Suspect]
     Indication: HYPERCHOLESTEROLAEMIA
     Dosage: PO
     Route: 048
     Dates: start: 20060101, end: 20060101
  2. ARIMIDEX [Concomitant]

REACTIONS (6)
  - ABNORMAL FAECES [None]
  - HOT FLUSH [None]
  - NECK PAIN [None]
  - PAIN [None]
  - PAIN IN EXTREMITY [None]
  - RASH MACULAR [None]
